FAERS Safety Report 15986289 (Version 1)
Quarter: 2019Q1

REPORT INFORMATION
  Report Type: Spontaneous
  Country: US (occurrence: US)
  Receive Date: 20190220
  Receipt Date: 20190220
  Transmission Date: 20190418
  Serious: No
  Sender: FDA-Public Use
  Company Number: US-EMD SERONO-9070500

PATIENT
  Sex: Female
  Weight: 59 kg

DRUGS (2)
  1. BAVENCIO [Suspect]
     Active Substance: AVELUMAB
     Indication: OVARIAN CANCER
     Route: 042
     Dates: end: 201901
  2. BAVENCIO [Suspect]
     Active Substance: AVELUMAB
     Indication: MALIGNANT PERITONEAL NEOPLASM
     Route: 042
     Dates: start: 201801

REACTIONS (1)
  - Off label use [Unknown]
